FAERS Safety Report 10614314 (Version 24)
Quarter: 2015Q3

REPORT INFORMATION
  Report Type: Report from Study
  Country: PL (occurrence: PL)
  Receive Date: 20141128
  Receipt Date: 20150916
  Transmission Date: 20151125
  Serious: Yes (Hospitalization, Other)
  Sender: FDA-Public Use
  Company Number: PHHY2014PL150778

PATIENT
  Age: 18 Year
  Sex: Female

DRUGS (24)
  1. CICLOSPORIN [Concomitant]
     Active Substance: CYCLOSPORINE
     Dosage: 120 MG, BID
     Route: 048
     Dates: start: 20141113, end: 20141121
  2. FLUCONAZOLE. [Concomitant]
     Active Substance: FLUCONAZOLE
     Dosage: 400 MG, UNK
     Route: 048
     Dates: start: 20141118, end: 20141204
  3. FLUCONAZOLE. [Concomitant]
     Active Substance: FLUCONAZOLE
     Dosage: 300 MG, UNK
     Route: 048
     Dates: start: 20141205, end: 20150109
  4. FLUCONAZOLE. [Concomitant]
     Active Substance: FLUCONAZOLE
     Dosage: 300 MG, BID
     Route: 048
     Dates: start: 20150110, end: 20150112
  5. FLUCONAZOLE. [Concomitant]
     Active Substance: FLUCONAZOLE
     Dosage: 400 MG, UNK
     Route: 048
     Dates: start: 20150203
  6. METRONIDAZOLE. [Concomitant]
     Active Substance: METRONIDAZOLE
     Dosage: 500 MG, 04 TIMES
     Route: 065
  7. EXJADE [Suspect]
     Active Substance: DEFERASIROX
     Dosage: 1000 MG, UNK
     Route: 048
     Dates: start: 20150818
  8. CICLOSPORIN [Concomitant]
     Active Substance: CYCLOSPORINE
     Dosage: 90 MG, BID
     Route: 048
     Dates: start: 20141128, end: 20141204
  9. CICLOSPORIN [Concomitant]
     Active Substance: CYCLOSPORINE
     Dosage: 70 MG, BID
     Route: 048
     Dates: start: 20150220, end: 20150222
  10. METRONIDAZOLE. [Concomitant]
     Active Substance: METRONIDAZOLE
     Indication: PRODUCT USED FOR UNKNOWN INDICATION
     Dosage: UNK
     Route: 065
  11. CICLOSPORIN [Concomitant]
     Active Substance: CYCLOSPORINE
     Dosage: 80 MG, BID
     Route: 048
     Dates: start: 20150206, end: 20150219
  12. CYCLONAMINE [Concomitant]
     Active Substance: ETHAMSYLATE
     Indication: PRODUCT USED FOR UNKNOWN INDICATION
     Route: 065
  13. CICLOSPORIN [Concomitant]
     Active Substance: CYCLOSPORINE
     Dosage: 100 MG, BID
     Route: 048
     Dates: start: 20150204, end: 20150205
  14. EXJADE [Suspect]
     Active Substance: DEFERASIROX
     Dosage: 1000 MG
     Route: 048
     Dates: start: 20150213, end: 20150813
  15. CICLOSPORIN [Concomitant]
     Active Substance: CYCLOSPORINE
     Dosage: 60 MG, BID
     Route: 048
     Dates: start: 20141217, end: 20150203
  16. FLUCONAZOLE. [Concomitant]
     Active Substance: FLUCONAZOLE
     Indication: PRODUCT USED FOR UNKNOWN INDICATION
     Dosage: 200 MG, UNK
     Route: 048
     Dates: start: 20141106, end: 20141117
  17. EXJADE [Suspect]
     Active Substance: DEFERASIROX
     Indication: IRON OVERLOAD
     Dosage: 1500 MG (20 MG/KG), QD
     Route: 048
     Dates: start: 20141107
  18. EXJADE [Suspect]
     Active Substance: DEFERASIROX
     Dosage: 500 MG
     Route: 048
     Dates: start: 20150210, end: 20150212
  19. CICLOSPORIN [Concomitant]
     Active Substance: CYCLOSPORINE
     Indication: PRODUCT USED FOR UNKNOWN INDICATION
     Dosage: 130 MG, BID
     Route: 048
     Dates: start: 20141106, end: 20141112
  20. CICLOSPORIN [Concomitant]
     Active Substance: CYCLOSPORINE
     Dosage: 60 MG, BID
     Route: 048
     Dates: start: 20150223
  21. EXJADE [Suspect]
     Active Substance: DEFERASIROX
     Dosage: 1550 MG
     Route: 048
     Dates: start: 20150202
  22. CICLOSPORIN [Concomitant]
     Active Substance: CYCLOSPORINE
     Dosage: 100 MG, BID
     Route: 048
     Dates: start: 20141122, end: 20141127
  23. CICLOSPORIN [Concomitant]
     Active Substance: CYCLOSPORINE
     Dosage: 80 MG, BID
     Route: 048
     Dates: start: 20141205, end: 20141217
  24. FLUCONAZOLE. [Concomitant]
     Active Substance: FLUCONAZOLE
     Dosage: 200 MG, BID
     Route: 048

REACTIONS (25)
  - Vomiting [Unknown]
  - Abdominal pain upper [Recovered/Resolved]
  - Diarrhoea [Recovered/Resolved]
  - Diarrhoea [Recovered/Resolved]
  - Malaise [Unknown]
  - Hypersensitivity [Recovered/Resolved]
  - Diarrhoea [Recovered/Resolved]
  - Nausea [Recovered/Resolved]
  - Haematochezia [Unknown]
  - Diarrhoea [Recovered/Resolved]
  - Diarrhoea [Recovered/Resolved]
  - Vomiting [Recovered/Resolved]
  - Metrorrhagia [Recovered/Resolved]
  - Erythema [Unknown]
  - Diarrhoea [Unknown]
  - Vomiting [Recovered/Resolved]
  - Diarrhoea [Recovered/Resolved]
  - Vaginal haemorrhage [Unknown]
  - Body temperature increased [Unknown]
  - C-reactive protein increased [Recovered/Resolved]
  - Laboratory test abnormal [Unknown]
  - Asthenia [Recovered/Resolved]
  - Abdominal pain [Recovered/Resolved]
  - C-reactive protein increased [Recovered/Resolved]
  - Diarrhoea [Recovered/Resolved]

NARRATIVE: CASE EVENT DATE: 20141114
